FAERS Safety Report 14702536 (Version 1)
Quarter: 2018Q2

REPORT INFORMATION
  Report Type: Spontaneous
  Country: FR (occurrence: FR)
  Receive Date: 20180401
  Receipt Date: 20180401
  Transmission Date: 20180711
  Serious: Yes (Other)
  Sender: FDA-Public Use
  Company Number: FR-MERCK KGAA-2044851

PATIENT
  Age: 63 Year
  Sex: Female
  Weight: 80 kg

DRUGS (5)
  1. EBIXA [Concomitant]
     Active Substance: MEMANTINE HYDROCHLORIDE
  2. NOVOTHYROX [Suspect]
     Active Substance: LEVOTHYROXINE SODIUM
     Indication: HYPOTHYROIDISM
     Route: 048
     Dates: start: 20170405, end: 20170927
  3. KARDEGIC [Concomitant]
     Active Substance: ASPIRIN DL-LYSINE
  4. SPAGULAX [Concomitant]
     Active Substance: PLANTAGO OVATA SEED
  5. VITAMIN D [Concomitant]
     Active Substance: CHOLECALCIFEROL

REACTIONS (13)
  - Muscle spasms [Recovered/Resolved]
  - Fatigue [Recovering/Resolving]
  - Visual impairment [Recovering/Resolving]
  - Fibromyalgia [Recovering/Resolving]
  - Dizziness [Recovered/Resolved]
  - Alopecia [Recovering/Resolving]
  - Muscular weakness [Recovering/Resolving]
  - Autonomic nervous system imbalance [Recovering/Resolving]
  - Weight increased [Recovering/Resolving]
  - Loss of personal independence in daily activities [Recovering/Resolving]
  - Palpitations [Recovering/Resolving]
  - Extrasystoles [Recovering/Resolving]
  - Fall [Recovered/Resolved]

NARRATIVE: CASE EVENT DATE: 201704
